FAERS Safety Report 25060734 (Version 2)
Quarter: 2025Q2

REPORT INFORMATION
  Report Type: Spontaneous
  Country: GB (occurrence: GB)
  Receive Date: 20250310
  Receipt Date: 20250428
  Transmission Date: 20250717
  Serious: Yes (Other)
  Sender: ABBVIE
  Company Number: GB-ABBVIE-5942877

PATIENT
  Age: 65 Year
  Sex: Female

DRUGS (2)
  1. BOTOX [Suspect]
     Active Substance: ONABOTULINUMTOXINA
     Indication: Skin wrinkling
     Route: 030
     Dates: start: 20240528, end: 20240528
  2. BOTOX [Suspect]
     Active Substance: ONABOTULINUMTOXINA
     Indication: Skin wrinkling
     Route: 030
     Dates: start: 2024, end: 2024

REACTIONS (17)
  - Organ failure [Unknown]
  - Anxiety [Unknown]
  - Dry eye [Unknown]
  - Influenza like illness [Unknown]
  - Bone loss [Unknown]
  - Facial wasting [Unknown]
  - Vision blurred [Unknown]
  - Renal pain [Unknown]
  - Alopecia [Unknown]
  - Drug hypersensitivity [Unknown]
  - Nose deformity [Unknown]
  - Adverse drug reaction [Unknown]
  - Injection site discomfort [Unknown]
  - Adverse drug reaction [Unknown]
  - Skin disorder [Unknown]
  - Dark circles under eyes [Unknown]
  - Discomfort [Unknown]

NARRATIVE: CASE EVENT DATE: 20240101
